FAERS Safety Report 23935040 (Version 1)
Quarter: 2024Q2

REPORT INFORMATION
  Report Type: Spontaneous
  Country: JP (occurrence: JP)
  Receive Date: 20240604
  Receipt Date: 20240604
  Transmission Date: 20240715
  Serious: Yes (Other)
  Sender: FDA-Public Use
  Company Number: JP-Merck Healthcare KGaA-2024029122

PATIENT
  Sex: Male

DRUGS (1)
  1. METGLUCO [Suspect]
     Active Substance: METFORMIN HYDROCHLORIDE
     Indication: Product used for unknown indication
     Dosage: UNK, 2 TO 3 YEARS
     Route: 048

REACTIONS (3)
  - Anaemia [Recovered/Resolved]
  - Glycosylated haemoglobin increased [Recovered/Resolved]
  - Drug ineffective [Unknown]
